FAERS Safety Report 6663063-9 (Version None)
Quarter: 2010Q1

REPORT INFORMATION
  Report Type: 
  Country: None (occurrence: None)
  Receive Date: 20100329
  Receipt Date: 20090527
  Transmission Date: 20100710
  Serious: Yes (Life-Threatening, Hospitalization)
  Sender: FDA-Public Use
  Company Number: 2009EN000172

PATIENT
  Age: 13 Year
  Sex: Male
  Weight: 54.5 kg

DRUGS (2)
  1. ONCASPAR [Suspect]
     Indication: ACUTE LYMPHOCYTIC LEUKAEMIA
     Dosage: ; IM
     Route: 030
     Dates: start: 20090526, end: 20090526
  2. VINCRISTINE [Concomitant]

REACTIONS (5)
  - ANAPHYLACTIC REACTION [None]
  - AURICULAR SWELLING [None]
  - PARAESTHESIA [None]
  - PHARYNGEAL OEDEMA [None]
  - PRURITUS [None]
